FAERS Safety Report 13036133 (Version 1)
Quarter: 2016Q4

REPORT INFORMATION
  Report Type: Spontaneous
  Country: JP (occurrence: JP)
  Receive Date: 20161216
  Receipt Date: 20161216
  Transmission Date: 20170207
  Serious: Yes (Death)
  Sender: FDA-Public Use
  Company Number: JP-CELGENEUS-JPN-2016121744

PATIENT
  Age: 72 Year
  Sex: Male

DRUGS (1)
  1. VIDAZA [Suspect]
     Active Substance: AZACITIDINE
     Indication: PRODUCT USED FOR UNKNOWN INDICATION
     Dosage: 75MG/M2
     Route: 041
     Dates: start: 20161024, end: 20161030

REACTIONS (2)
  - Pulmonary alveolar haemorrhage [Fatal]
  - Interstitial lung disease [Fatal]

NARRATIVE: CASE EVENT DATE: 20161117
